FAERS Safety Report 9441944 (Version 1)
Quarter: 2013Q3

REPORT INFORMATION
  Report Type: Spontaneous
  Country: US (occurrence: US)
  Receive Date: 20130806
  Receipt Date: 20130806
  Transmission Date: 20140515
  Serious: No
  Sender: FDA-Public Use
  Company Number: US-009507513-1308USA002246

PATIENT
  Sex: 0

DRUGS (3)
  1. PROVENTIL [Suspect]
     Indication: ASTHMA
     Dosage: 2 PUFFS, Q4H, 1 STANDARD DOSE OF 6.7
     Route: 055
     Dates: start: 2003
  2. PROVENTIL [Suspect]
     Indication: CHRONIC OBSTRUCTIVE PULMONARY DISEASE
  3. PROVENTIL [Suspect]
     Indication: EMPHYSEMA

REACTIONS (3)
  - Drug dose omission [Unknown]
  - Product quality issue [Unknown]
  - No adverse event [Unknown]
